FAERS Safety Report 9287093 (Version 2)
Quarter: 2013Q2

REPORT INFORMATION
  Report Type: Spontaneous
  Country: US (occurrence: US)
  Receive Date: 20130513
  Receipt Date: 20130603
  Transmission Date: 20140414
  Serious: Yes (Hospitalization)
  Sender: FDA-Public Use
  Company Number: US-B.I. PHARMACEUTICALS,INC./RIDGEFIELD-2013-BI-13193BP

PATIENT
  Age: 85 Year
  Sex: Male
  Weight: 99.79 kg

DRUGS (11)
  1. PRADAXA [Suspect]
     Indication: ANTICOAGULANT THERAPY
     Dosage: 300 MG
     Route: 048
     Dates: start: 20110826, end: 20111103
  2. PRADAXA [Suspect]
     Indication: ATRIAL FIBRILLATION
  3. ALLOPURINOL [Concomitant]
     Dosage: 100 MG
     Route: 048
  4. MULTAQ [Concomitant]
     Dosage: 800 MG
     Route: 048
  5. EPLERENONE [Concomitant]
     Dosage: 25 MG
     Route: 048
  6. LASIX [Concomitant]
     Dosage: 40 MG
     Route: 048
  7. CRESTOR [Concomitant]
     Dosage: 10 MG
     Route: 048
  8. TOPROL XL [Concomitant]
     Dosage: 12.5 MG
     Route: 048
  9. ASPIRIN [Concomitant]
     Dosage: 81 MG
     Route: 048
  10. XALATAN [Concomitant]
  11. TIMOLOL [Concomitant]

REACTIONS (1)
  - Gastrointestinal haemorrhage [Unknown]
